FAERS Safety Report 9016101 (Version 2)
Quarter: 2013Q1

REPORT INFORMATION
  Report Type: Spontaneous
  Country: US (occurrence: US)
  Receive Date: 20130116
  Receipt Date: 20130225
  Transmission Date: 20140127
  Serious: Yes (Death, Other)
  Sender: FDA-Public Use
  Company Number: US-INCYTE CORPORATION-2012IN002634

PATIENT
  Age: 75 Year
  Sex: Female
  Weight: 55.33 kg

DRUGS (8)
  1. JAKAFI [Suspect]
     Indication: MYELOFIBROSIS
     Dosage: 10 MG, BID
     Route: 048
     Dates: start: 20120625, end: 20121223
  2. TRAMADOL [Concomitant]
  3. B12 [Concomitant]
  4. VITAMIN D3 [Concomitant]
  5. SPIRULINA [Concomitant]
  6. FLEXERIL [Concomitant]
  7. MVI [Concomitant]
  8. COMPAZINE [Concomitant]

REACTIONS (3)
  - Disease progression [Fatal]
  - Haemoglobin decreased [Unknown]
  - Haematocrit decreased [Unknown]
